FAERS Safety Report 9276130 (Version 1)
Quarter: 2013Q2

REPORT INFORMATION
  Report Type: Spontaneous
  Country: US (occurrence: None)
  Receive Date: 20130502
  Receipt Date: 20130502
  Transmission Date: 20140414
  Serious: Yes (Other)
  Sender: FDA-Public Use
  Company Number: None

PATIENT
  Age: 53 Year
  Sex: Male

DRUGS (1)
  1. ENBREL SURECLICK [Suspect]
     Indication: PSORIASIS
     Route: 058
     Dates: start: 20100216, end: 20101103

REACTIONS (3)
  - White blood cell count decreased [None]
  - Splenomegaly [None]
  - Spleen disorder [None]
